FAERS Safety Report 16463215 (Version 2)
Quarter: 2019Q2

REPORT INFORMATION
  Report Type: Spontaneous
  Country: US (occurrence: US)
  Receive Date: 20190621
  Receipt Date: 20190626
  Transmission Date: 20190711
  Serious: No
  Sender: FDA-Public Use
  Company Number: US-PFIZER INC-2016556980

PATIENT
  Age: 70 Year
  Sex: Male
  Weight: 137 kg

DRUGS (22)
  1. TRULICITY [Concomitant]
     Active Substance: DULAGLUTIDE
     Indication: DIABETES MELLITUS
     Dosage: 1.5 MG, WEEKLY
  2. LYRICA [Suspect]
     Active Substance: PREGABALIN
     Indication: NEUROPATHY PERIPHERAL
     Dosage: 150 MG, 2X/DAY
     Route: 048
  3. LEVOTHYROXINE. [Concomitant]
     Active Substance: LEVOTHYROXINE
     Dosage: 224 UG, DAILY
     Route: 048
  4. MUCINEX [Concomitant]
     Active Substance: GUAIFENESIN
     Dosage: 1 DF, DAILY
  5. LYRICA [Suspect]
     Active Substance: PREGABALIN
     Indication: MUSCULAR WEAKNESS
     Dosage: 150 MG, 2X/DAY [2 CAP (75 MG) 2 TIMES A DAY)]
     Route: 048
  6. FUROSEMIDE. [Concomitant]
     Active Substance: FUROSEMIDE
     Indication: DIURETIC THERAPY
     Dosage: 40 MG, UNK (5(+2) AM, 3 (2) PM)
  7. ZITHROMAX [Concomitant]
     Active Substance: AZITHROMYCIN DIHYDRATE
     Dosage: 250 MG, UNK (TAKE 45 MINUTES BEFORE BREAKFAST AND ALL OTHER MEDICATIONS)
  8. HUMALOG 75/25 [Concomitant]
     Indication: DIABETES MELLITUS
     Dosage: UNK UNK, AS NEEDED (SLIDING SCALE AS NEEDED)(BEFORE BREAKFAST + BEFORE DINNER)
  9. ASPIRIN. [Concomitant]
     Active Substance: ASPIRIN
     Dosage: 81 MG, DAILY
  10. LEVOTHYROXINE. [Concomitant]
     Active Substance: LEVOTHYROXINE
     Indication: THYROID DISORDER
     Dosage: 175 UG, 1X/DAY (PRE-BREAKFAST 1 DAILY)
  11. TRICOR [Concomitant]
     Active Substance: FENOFIBRATE
     Indication: BLOOD CHOLESTEROL
     Dosage: 145 MG, 1X/DAY (MORNING 1 DAILY)
  12. PROVENTIL HFA [Concomitant]
     Active Substance: ALBUTEROL SULFATE
     Dosage: UNK UNK, AS NEEDED (QID IF NEEDED)
  13. FLUCONAZOLE. [Concomitant]
     Active Substance: FLUCONAZOLE
     Dosage: 200 MG, 1X/DAY (TAKE 45 MINUTES BEFORE BREAKFAST AND ALL OTHER MEDICATIONS)
  14. HYDRALAZINE [Concomitant]
     Active Substance: HYDRALAZINE HYDROCHLORIDE
     Dosage: 25 MG, 3X/DAY
  15. CARVEDILOL. [Concomitant]
     Active Substance: CARVEDILOL
     Dosage: 3.125 MG, 2X/DAY
  16. LEXAPRO [Concomitant]
     Active Substance: ESCITALOPRAM OXALATE
     Indication: DEPRESSION
     Dosage: 20 MG, DAILY
  17. CALCITROL [Concomitant]
     Active Substance: CALCITRIOL
     Dosage: .25 UG, DAILY
  18. NOVOLOG [Concomitant]
     Active Substance: INSULIN ASPART
     Dosage: UNK
  19. CHLORTHALIDONE. [Concomitant]
     Active Substance: CHLORTHALIDONE
     Dosage: 25 MG, (1 TAB ON MON-WED-FRI)
  20. VITAMIN D3 [Concomitant]
     Active Substance: CHOLECALCIFEROL
     Dosage: 2000 IU, DAILY
  21. SODIUM BICARBONATE. [Concomitant]
     Active Substance: SODIUM BICARBONATE
     Dosage: 650 MG, 2X/DAY
  22. ZYRTEC [Concomitant]
     Active Substance: CETIRIZINE HYDROCHLORIDE
     Dosage: 10 MG, UNK (TAKE 45 MINUTES BEFORE BREAKFAST AND ALL OTHER MEDICATIONS)

REACTIONS (3)
  - Arthralgia [Unknown]
  - Peripheral swelling [Unknown]
  - Erythema [Unknown]
